FAERS Safety Report 23471166 (Version 1)
Quarter: 2024Q1

REPORT INFORMATION
  Report Type: Spontaneous
  Country: US (occurrence: US)
  Receive Date: 20240202
  Receipt Date: 20240202
  Transmission Date: 20240409
  Serious: No
  Sender: FDA-Public Use
  Company Number: US-KARYOPHARM-2023KPT002266

PATIENT

DRUGS (16)
  1. XPOVIO [Suspect]
     Active Substance: SELINEXOR
     Indication: Plasma cell myeloma
     Dosage: 100 MG, WEEKLY
     Route: 048
     Dates: start: 202310, end: 20231213
  2. XPOVIO [Suspect]
     Active Substance: SELINEXOR
     Dosage: 80 MG, WEEKLY
     Route: 048
     Dates: start: 20231213
  3. ROSUVASTATIN [Concomitant]
     Active Substance: ROSUVASTATIN
  4. BACTRIM DS [Concomitant]
     Active Substance: SULFAMETHOXAZOLE\TRIMETHOPRIM
  5. TRAMADOL [Concomitant]
     Active Substance: TRAMADOL\TRAMADOL HYDROCHLORIDE
  6. ZOLEDRONIC ACID [Concomitant]
     Active Substance: ZOLEDRONIC ACID
  7. ONDANSETRON [Concomitant]
     Active Substance: ONDANSETRON
     Dosage: 100 UNK
  8. ACYCLOVIR [Concomitant]
     Active Substance: ACYCLOVIR
  9. CLONAZEPAM [Concomitant]
     Active Substance: CLONAZEPAM
  10. DEXAMETHASONE [Concomitant]
     Active Substance: DEXAMETHASONE
  11. ELIQUIS [Concomitant]
     Active Substance: APIXABAN
  12. GABAPENTIN [Concomitant]
     Active Substance: GABAPENTIN
  13. METOPROLOL [Concomitant]
     Active Substance: METOPROLOL
  14. OLANZAPINE [Concomitant]
     Active Substance: OLANZAPINE
  15. PROCHLORPERAZINE [Concomitant]
     Active Substance: PROCHLORPERAZINE
  16. VELCADE [Concomitant]
     Active Substance: BORTEZOMIB

REACTIONS (2)
  - Nausea [Unknown]
  - Platelet count decreased [Unknown]

NARRATIVE: CASE EVENT DATE: 20230101
